FAERS Safety Report 10076018 (Version 1)
Quarter: 2014Q2

REPORT INFORMATION
  Report Type: Spontaneous
  Country: GB (occurrence: GB)
  Receive Date: 20140414
  Receipt Date: 20140414
  Transmission Date: 20141212
  Serious: Yes (Other)
  Sender: FDA-Public Use
  Company Number: GB-NOVOPROD-405776

PATIENT
  Age: 62 Year
  Sex: Female
  Weight: 77.4 kg

DRUGS (5)
  1. VAGIFEM [Suspect]
     Indication: PRODUCT USED FOR UNKNOWN INDICATION
     Dosage: UNK
     Route: 067
  2. ISOPROPYL MYRISTATE [Concomitant]
     Dosage: UNK
     Route: 065
  3. DOUBLEBASE [Concomitant]
     Dosage: UNK
     Route: 065
     Dates: start: 20131030, end: 20131225
  4. PARAFFIN, LIQUID [Concomitant]
     Dosage: UNK
     Route: 065
     Dates: start: 20131030, end: 20140122
  5. LEVOTHYROXINE [Concomitant]
     Indication: PRODUCT USED FOR UNKNOWN INDICATION
     Dosage: UNK
     Route: 065

REACTIONS (1)
  - Cough [Recovered/Resolved]
